FAERS Safety Report 4857807-6 (Version None)
Quarter: 2005Q4

REPORT INFORMATION
  Report Type: 
  Country: None (occurrence: None)
  Receive Date: 20051219
  Receipt Date: 20050407
  Transmission Date: 20060501
  Serious: No
  Sender: FDA-Public Use
  Company Number: US-GLAXOSMITHKLINE-A0553097A

PATIENT
  Age: 39 Year
  Sex: Male

DRUGS (2)
  1. NICODERM CQ [Suspect]
     Dates: start: 20050401, end: 20050401
  2. LAMICTAL [Concomitant]

REACTIONS (3)
  - COLD SWEAT [None]
  - INITIAL INSOMNIA [None]
  - NAUSEA [None]
